FAERS Safety Report 25271218 (Version 2)
Quarter: 2025Q2

REPORT INFORMATION
  Report Type: Report from Study
  Country: JP (occurrence: JP)
  Receive Date: 20250506
  Receipt Date: 20250620
  Transmission Date: 20250716
  Serious: Yes (Other)
  Sender: TAKEDA
  Company Number: JP-TAKEDA-2025TJP004278

PATIENT
  Age: 5 Year
  Sex: Female

DRUGS (18)
  1. TEDUGLUTIDE [Suspect]
     Active Substance: TEDUGLUTIDE
     Indication: Short-bowel syndrome
  2. TEDUGLUTIDE [Suspect]
     Active Substance: TEDUGLUTIDE
  3. TEDUGLUTIDE [Suspect]
     Active Substance: TEDUGLUTIDE
  4. TEDUGLUTIDE [Suspect]
     Active Substance: TEDUGLUTIDE
  5. MIYA-BM [Concomitant]
     Active Substance: CLOSTRIDIUM BUTYRICUM SPORES STRAIN M-55
     Indication: Short-bowel syndrome
  6. ALLOID G [Concomitant]
     Active Substance: SODIUM ALGINATE
     Indication: Short-bowel syndrome
  7. FAMOTIDINE [Concomitant]
     Active Substance: FAMOTIDINE
     Indication: Short-bowel syndrome
  8. MARZULENE [Concomitant]
     Indication: Short-bowel syndrome
  9. URSO [Concomitant]
     Active Substance: URSODIOL
     Indication: Short-bowel syndrome
  10. ICOSAPENT [Concomitant]
     Active Substance: ICOSAPENT
     Indication: Short-bowel syndrome
  11. LEVOCARNITINE HYDROCHLORIDE [Concomitant]
     Active Substance: LEVOCARNITINE HYDROCHLORIDE
     Indication: Short-bowel syndrome
  12. LEVOCARNITINE [Concomitant]
     Active Substance: LEVOCARNITINE
  13. HERBALS [Concomitant]
     Active Substance: HERBALS
  14. MYSTAN [Concomitant]
     Active Substance: CLOBAZAM
  15. LAMICTAL [Concomitant]
     Active Substance: LAMOTRIGINE
  16. QUESTRAN [Concomitant]
     Active Substance: CHOLESTYRAMINE
  17. CARBOCYSTEINE [Concomitant]
     Active Substance: CARBOCYSTEINE
  18. AMBROXOL HYDROCHLORIDE [Concomitant]
     Active Substance: AMBROXOL HYDROCHLORIDE

REACTIONS (1)
  - Renal impairment [Recovering/Resolving]

NARRATIVE: CASE EVENT DATE: 20230602
